FAERS Safety Report 8186100 (Version 3)
Quarter: 2013Q1

REPORT INFORMATION
  Report Type: Report from Study
  Country: BR (occurrence: BR)
  Receive Date: 20111018
  Receipt Date: 20130117
  Transmission Date: 20140127
  Serious: Yes (Other)
  Sender: FDA-Public Use
  Company Number: BR-ROCHE-1004635

PATIENT
  Age: 58 Year
  Sex: Female
  Weight: 110 kg

DRUGS (7)
  1. RITUXIMAB [Suspect]
     Indication: RHEUMATOID ARTHRITIS
     Route: 065
     Dates: start: 201008
  2. RITUXIMAB [Suspect]
     Route: 065
     Dates: start: 201101
  3. RITUXIMAB [Suspect]
     Route: 065
     Dates: start: 201109
  4. RITUXIMAB [Suspect]
     Dosage: APR OR MAY/2012
     Route: 065
  5. RITUXIMAB [Suspect]
     Route: 065
     Dates: start: 201212
  6. NOVALGINA [Concomitant]
     Route: 065
  7. PURAN T4 [Concomitant]
     Route: 065

REACTIONS (7)
  - Arthropathy [Unknown]
  - Weight increased [Unknown]
  - Pain [Recovering/Resolving]
  - Epistaxis [Recovered/Resolved]
  - Skin atrophy [Unknown]
  - Nasopharyngitis [Recovered/Resolved]
  - Hypertension [Unknown]
